FAERS Safety Report 10441300 (Version 2)
Quarter: 2018Q2

REPORT INFORMATION
  Report Type: Spontaneous
  Country: BR (occurrence: BR)
  Receive Date: 20140909
  Receipt Date: 20180619
  Transmission Date: 20180711
  Serious: Yes (Other)
  Sender: FDA-Public Use
  Company Number: BR-BAYER-2014-132011

PATIENT
  Age: 33 Year
  Sex: Female

DRUGS (5)
  1. CELESTONE [Concomitant]
     Active Substance: BETAMETHASONE
     Indication: MATERNAL THERAPY TO ENHANCE FOETAL LUNG MATURITY
     Dosage: UNK
     Dates: start: 2014, end: 201406
  2. OXCARBAZEPINE. [Concomitant]
     Active Substance: OXCARBAZEPINE
     Dosage: 300 MG, UNK
  3. CELEBRA [Concomitant]
     Active Substance: CELECOXIB
     Dosage: 20 MG, UNK
  4. MIRENA [Suspect]
     Active Substance: LEVONORGESTREL
     Indication: CONTRACEPTION
     Dosage: 20 MCG/24HR, CONT
     Route: 015
     Dates: start: 20110909, end: 20140721
  5. CYCLOBENZAPRINE. [Concomitant]
     Active Substance: CYCLOBENZAPRINE

REACTIONS (13)
  - Vomiting [Recovered/Resolved]
  - Abdominal pain [None]
  - High risk pregnancy [Recovered/Resolved]
  - Feeling abnormal [Recovered/Resolved]
  - Drug ineffective [None]
  - Premature delivery [Recovered/Resolved]
  - Pregnancy with contraceptive device [None]
  - Premature labour [Recovered/Resolved]
  - Nausea [Recovered/Resolved]
  - Somnolence [None]
  - Carpal tunnel syndrome [Recovered/Resolved]
  - Vaginal haemorrhage [Recovered/Resolved]
  - Depression [Unknown]

NARRATIVE: CASE EVENT DATE: 2011
